FAERS Safety Report 8483173-3 (Version None)
Quarter: 2012Q3

REPORT INFORMATION
  Report Type: 
  Country: None (occurrence: None)
  Receive Date: 20120702
  Receipt Date: 20120626
  Transmission Date: 20120928
  Serious: Yes (Other)
  Sender: FDA-Public Use
  Company Number: VE-PFIZER INC-2012150951

PATIENT
  Age: 81 Year
  Sex: Female

DRUGS (1)
  1. CADUET [Suspect]
     Indication: HYPERTENSION
     Dosage: [AMLODIPINE BESILATE 5 MG]/ [ATORVASTATIN CALCIUM 20 MG], UNK
     Route: 048
     Dates: start: 20070101

REACTIONS (1)
  - LIGAMENT SPRAIN [None]
